FAERS Safety Report 7475105-1 (Version None)
Quarter: 2011Q2

REPORT INFORMATION
  Report Type: 
  Country: None (occurrence: None)
  Receive Date: 20110512
  Receipt Date: 20110426
  Transmission Date: 20111010
  Serious: No
  Sender: FDA-Public Use
  Company Number: US-B.I. PHARMACEUTICALS,INC./RIDGEFIELD-2011-BP-11833BP

PATIENT
  Age: 81 Year
  Sex: Female

DRUGS (5)
  1. CALCIUM [Concomitant]
     Indication: SUPPLEMENTATION THERAPY
     Route: 048
  2. ZOLOFT [Concomitant]
     Indication: DEPRESSION
     Dosage: 100 MG
     Route: 048
  3. PRADAXA [Suspect]
     Indication: ATRIAL FIBRILLATION
     Dosage: 300 MG
     Route: 048
     Dates: start: 20110101
  4. LIPITOR [Concomitant]
     Indication: DYSLIPIDAEMIA
     Dosage: 40 MG
     Route: 048
  5. VIT D [Concomitant]
     Indication: SUPPLEMENTATION THERAPY
     Route: 048

REACTIONS (5)
  - BACK PAIN [None]
  - HEADACHE [None]
  - ABDOMINAL PAIN [None]
  - DYSPEPSIA [None]
  - ASTHENIA [None]
